FAERS Safety Report 9384572 (Version 1)
Quarter: 2013Q3

REPORT INFORMATION
  Report Type: Spontaneous
  Country: US (occurrence: US)
  Receive Date: 20130705
  Receipt Date: 20130705
  Transmission Date: 20140515
  Serious: No
  Sender: FDA-Public Use
  Company Number: US-BAYER-2013-081796

PATIENT
  Sex: Male

DRUGS (10)
  1. BETASERON [Suspect]
     Dosage: 1 ML, QOD
     Route: 058
  2. VICTOZA [Concomitant]
     Dosage: 18 MG, UNK
  3. LANTUS [Concomitant]
  4. METFORMIN [Concomitant]
     Dosage: 500 MG, UNK
  5. LIPITOR [Concomitant]
     Dosage: 10 MG, UNK
  6. LOSARTAN POTASSIUM [Concomitant]
     Dosage: 25 MG, UNK
  7. TOPROL XL [Concomitant]
     Dosage: 25 MG, UNK
  8. OMEPRAZOLE [Concomitant]
     Dosage: 10 MG, UNK
  9. SYNTHROID [Concomitant]
     Dosage: 100 ?G, UNK
  10. ASPIRIN [Concomitant]
     Dosage: 81 MG, UNK

REACTIONS (1)
  - Feeling abnormal [Unknown]
